FAERS Safety Report 5928171-6 (Version None)
Quarter: 2008Q4

REPORT INFORMATION
  Report Type: 
  Country: None (occurrence: None)
  Receive Date: 20081023
  Receipt Date: 20081013
  Transmission Date: 20090506
  Serious: Yes (Hospitalization)
  Sender: FDA-Public Use
  Company Number: PHHY2008FR15328

PATIENT
  Sex: Female

DRUGS (6)
  1. ZOMETA [Suspect]
     Indication: OSTEOPOROSIS
     Dosage: 1 PERFUSION QMO
     Dates: end: 20080616
  2. ZOMETA [Suspect]
     Dosage: 1 PERFUSION QMO
     Dates: end: 20080601
  3. REVLIMID [Suspect]
     Dosage: 10 MG QOD FOR 21 DAYS PER MONTH
     Dates: start: 20071201
  4. REVLIMID [Suspect]
     Dosage: 20 MG, QW
     Dates: end: 20080619
  5. REVLIMID [Suspect]
     Dosage: 30 MG, QW
  6. DEXAMETHASONE [Concomitant]
     Dosage: 20 MG, QW

REACTIONS (11)
  - BLOOD CREATININE ABNORMAL [None]
  - BLOOD PARATHYROID HORMONE INCREASED [None]
  - CONDITION AGGRAVATED [None]
  - FANCONI SYNDROME ACQUIRED [None]
  - HYPOCALCAEMIA [None]
  - KIDNEY FIBROSIS [None]
  - RENAL AMYLOIDOSIS [None]
  - RENAL ATROPHY [None]
  - RENAL FAILURE ACUTE [None]
  - RENAL IMPAIRMENT [None]
  - RENAL TUBULAR NECROSIS [None]
